FAERS Safety Report 4817984-X (Version None)
Quarter: 2005Q4

REPORT INFORMATION
  Report Type: 
  Country: None (occurrence: None)
  Receive Date: 20051102
  Receipt Date: 20051021
  Transmission Date: 20060501
  Serious: Yes (Other)
  Sender: FDA-Public Use
  Company Number: US-JNJFOC-20050804710

PATIENT
  Sex: Female
  Weight: 83.01 kg

DRUGS (38)
  1. REMICADE [Suspect]
     Indication: CROHN'S DISEASE
     Route: 042
  2. QUESTRAN [Concomitant]
     Dosage: 2-6 TIMES DAILY
  3. ASACOL [Concomitant]
  4. ASACOL [Concomitant]
     Dosage: 2 PO TID
  5. B 12 [Concomitant]
     Route: 050
  6. PREVACID [Concomitant]
  7. REGLAN [Concomitant]
  8. SALSALATE [Concomitant]
  9. VALIUM [Concomitant]
     Route: 048
  10. OMEGA 3 FATTY ACIDS [Concomitant]
     Dosage: 120-180 MG 1 Q AM
  11. OMEGA 3 FATTY ACIDS [Concomitant]
  12. MULTIPLE VITAMIN [Concomitant]
  13. MULTIPLE VITAMIN [Concomitant]
  14. MULTIPLE VITAMIN [Concomitant]
  15. MULTIPLE VITAMIN [Concomitant]
  16. MULTIPLE VITAMIN [Concomitant]
  17. MULTIPLE VITAMIN [Concomitant]
  18. MULTIPLE VITAMIN [Concomitant]
  19. MULTIPLE VITAMIN [Concomitant]
  20. ASCORBIC ACID [Concomitant]
  21. VITAMIN E [Concomitant]
  22. CALCIUM GLUCONATE [Concomitant]
  23. MAGNESIUM [Concomitant]
  24. GLUCOSAMINE [Concomitant]
  25. GLUCOSAMINE [Concomitant]
     Dosage: 3 PO QD
  26. CHONDROITIN SULFATE [Concomitant]
     Dosage: 3 PO QD
  27. CHONDROITIN SULFATE [Concomitant]
  28. MSM [Concomitant]
     Dosage: 3 PO QD
  29. MSM [Concomitant]
  30. ANALPRAM [Concomitant]
  31. ANALPRAM [Concomitant]
  32. REGLAN [Concomitant]
     Dosage: PRN
  33. QUININE SULFATE [Concomitant]
     Dosage: HS PRN
  34. GAS X [Concomitant]
     Dosage: PRN
  35. LEVSIN [Concomitant]
     Dosage: PRN
  36. EVENING PRIMROSE OIL [Concomitant]
  37. DIPHENHYDRAMINE HCL [Concomitant]
     Indication: PREMEDICATION
     Route: 048
  38. ACETAMINOPHEN [Concomitant]
     Indication: PREMEDICATION
     Route: 048

REACTIONS (7)
  - ALOPECIA [None]
  - ANXIETY [None]
  - CROHN'S DISEASE [None]
  - DIABETES MELLITUS NON-INSULIN-DEPENDENT [None]
  - GOUT [None]
  - INFUSION RELATED REACTION [None]
  - MYALGIA [None]
